FAERS Safety Report 16048208 (Version 2)
Quarter: 2021Q1

REPORT INFORMATION
  Report Type: Spontaneous
  Country: US (occurrence: US)
  Receive Date: 20190307
  Receipt Date: 20210128
  Transmission Date: 20210419
  Serious: No
  Sender: FDA-Public Use
  Company Number: US-ASTRAZENECA-2019SE21443

PATIENT
  Age: 75 Year
  Sex: Female

DRUGS (4)
  1. FASLODEX [Suspect]
     Active Substance: FULVESTRANT
     Indication: ADJUVANT THERAPY
     Dosage: ONCE A MONTH
     Route: 030
  2. TAMOXIFEN [Suspect]
     Active Substance: TAMOXIFEN
     Route: 048
  3. ARIMIDEX [Suspect]
     Active Substance: ANASTROZOLE
     Route: 048
  4. IBRANCE [Suspect]
     Active Substance: PALBOCICLIB
     Indication: BREAST CANCER METASTATIC
     Route: 048

REACTIONS (11)
  - Hypoaesthesia [Unknown]
  - Cognitive disorder [Not Recovered/Not Resolved]
  - Sensory loss [Unknown]
  - Thermal burn [Unknown]
  - Drug ineffective [Unknown]
  - Weight decreased [Unknown]
  - Neuropathy peripheral [Recovering/Resolving]
  - Constipation [Recovering/Resolving]
  - Alopecia [Recovering/Resolving]
  - Smear cervix abnormal [Unknown]
  - Decreased appetite [Unknown]
